FAERS Safety Report 4795345-X (Version None)
Quarter: 2005Q4

REPORT INFORMATION
  Report Type: 
  Country: None (occurrence: None)
  Receive Date: 20051006
  Receipt Date: 20050506
  Transmission Date: 20060501
  Serious: Yes (Hospitalization)
  Sender: FDA-Public Use
  Company Number: 805#1#2005-00042

PATIENT
  Age: 76 Year
  Sex: Male

DRUGS (5)
  1. PROSTANDIN [Suspect]
     Indication: ARTERIOSCLEROSIS OBLITERANS
     Dosage: SEE IMAGE
     Route: 041
     Dates: start: 20040520, end: 20050407
  2. PROSTANDIN [Suspect]
     Indication: ARTERIOSCLEROSIS OBLITERANS
     Dosage: SEE IMAGE
     Route: 041
     Dates: start: 20050408, end: 20050419
  3. GLYBURIDE [Concomitant]
  4. VOGLIBOSE (VOGLIBOSE) [Concomitant]
  5. FAMOTIDINE [Concomitant]

REACTIONS (8)
  - CONDITION AGGRAVATED [None]
  - INFLAMMATION [None]
  - INFLUENZA LIKE ILLNESS [None]
  - INTERSTITIAL LUNG DISEASE [None]
  - LUNG DISORDER [None]
  - OEDEMA [None]
  - PNEUMONIA VIRAL [None]
  - RESPIRATORY FAILURE [None]
